FAERS Safety Report 14922326 (Version 1)
Quarter: 2018Q2

REPORT INFORMATION
  Report Type: Report from Study
  Country: IT (occurrence: IT)
  Receive Date: 20180522
  Receipt Date: 20180522
  Transmission Date: 20180711
  Serious: Yes (Other)
  Sender: FDA-Public Use
  Company Number: IT-ROCHE-1957746

PATIENT

DRUGS (2)
  1. CISPLATIN. [Suspect]
     Active Substance: CISPLATIN
     Indication: RECTAL CANCER
     Dosage: DAY 1 AND 22
     Route: 065
  2. CAPECITABINE. [Suspect]
     Active Substance: CAPECITABINE
     Indication: RECTAL CANCER
     Dosage: DAYS 1 TO 14 AND 22 THROUGH 35
     Route: 065

REACTIONS (11)
  - Nausea [Unknown]
  - Pelvic pain [Unknown]
  - Nephropathy toxic [Unknown]
  - Diarrhoea [Unknown]
  - Abdominal pain [Unknown]
  - Bone marrow toxicity [Unknown]
  - Peripheral sensory neuropathy [Unknown]
  - Vomiting [Unknown]
  - Fatigue [Unknown]
  - Radiation skin injury [Unknown]
  - Palmar-plantar erythrodysaesthesia syndrome [Unknown]
